FAERS Safety Report 17464069 (Version 1)
Quarter: 2020Q1

REPORT INFORMATION
  Report Type: Spontaneous
  Country: US (occurrence: US)
  Receive Date: 20200226
  Receipt Date: 20200226
  Transmission Date: 20200409
  Serious: No
  Sender: FDA-Public Use
  Company Number: US-PFIZER INC-2020085583

PATIENT
  Age: 49 Year
  Sex: Female
  Weight: 78.46 kg

DRUGS (2)
  1. IBRANCE [Suspect]
     Active Substance: PALBOCICLIB
     Dosage: 100 MG, CYCLIC [DAILY ON DAYS 1 THROUGH 21 OF 28 DAY]
     Route: 048
     Dates: start: 20200201
  2. LETROZOLE. [Suspect]
     Active Substance: LETROZOLE

REACTIONS (2)
  - Bone pain [Unknown]
  - Hot flush [Unknown]
